FAERS Safety Report 4368780-1 (Version None)
Quarter: 2004Q2

REPORT INFORMATION
  Report Type: 
  Country: None (occurrence: None)
  Receive Date: 20040525
  Receipt Date: 20040427
  Transmission Date: 20050107
  Serious: Yes (Life-Threatening, Hospitalization)
  Sender: FDA-Public Use
  Company Number: M2004.0464

PATIENT
  Age: 73 Year
  Sex: Male

DRUGS (3)
  1. RIMACATIN (RIFAMPICIN) [Suspect]
     Indication: ATYPICAL MYCOBACTERIAL INFECTION
     Dates: start: 20030123
  2. ISONIAZID [Concomitant]
  3. ETHAMBUTOL HCL [Concomitant]

REACTIONS (7)
  - ADRENAL INSUFFICIENCY [None]
  - BLOOD GLUCOSE DECREASED [None]
  - COMA [None]
  - GAIT DISTURBANCE [None]
  - INAPPROPRIATE ANTIDIURETIC HORMONE SECRETION [None]
  - PNEUMONIA [None]
  - RATHKE'S CLEFT CYST [None]
